FAERS Safety Report 16020983 (Version 1)
Quarter: 2019Q1

REPORT INFORMATION
  Report Type: Spontaneous
  Country: US (occurrence: US)
  Receive Date: 20190301
  Receipt Date: 20190301
  Transmission Date: 20190418
  Serious: No
  Sender: FDA-Public Use
  Company Number: US-PFIZER INC-2018064809

PATIENT
  Sex: Female

DRUGS (2)
  1. CALTRATE GUMMY BITES [Suspect]
     Active Substance: CALCIUM CARBONATE\CALCIUM CITRATE\CALCIUM PHOSPHATE\CHOLECALCIFEROL\VITAMIN D
     Dosage: UNK, (SHE USED ABOUT 4 )
     Dates: start: 20180205
  2. ALAVERT ALLERGY [Suspect]
     Active Substance: LORATADINE
     Dosage: UNK

REACTIONS (1)
  - Abdominal pain upper [Recovering/Resolving]
